FAERS Safety Report 4596936-1 (Version None)
Quarter: 2005Q1

REPORT INFORMATION
  Report Type: 
  Country: None (occurrence: None)
  Receive Date: 20050228
  Receipt Date: 20041104
  Transmission Date: 20050727
  Serious: Yes (Hospitalization)
  Sender: FDA-Public Use
  Company Number: 2004241905US

PATIENT
  Age: 79 Year
  Sex: Female

DRUGS (6)
  1. CELEBREX [Suspect]
     Indication: ARTHRITIS
     Dosage: (200 MG, 1 IN 1 D), ORAL
     Route: 048
  2. ALENDORNATE SODIUM (ALENDRONATE SODIUM) [Concomitant]
  3. TOLTERODINE TARTRATE [Concomitant]
  4. AMLODIPINE BESILATE (AMLODIPINE BESILATE0 [Concomitant]
  5. LISINOPIRL (LISINOPRIL) [Concomitant]
  6. RALOXIFENE HCL [Concomitant]

REACTIONS (7)
  - BACK PAIN [None]
  - BLOOD PRESSURE INCREASED [None]
  - DYSPEPSIA [None]
  - GLOSSITIS [None]
  - LICHEN PLANUS [None]
  - NASOPHARYNGITIS [None]
  - TONGUE DISORDER [None]
